FAERS Safety Report 9668765 (Version 1)
Quarter: 2013Q4

REPORT INFORMATION
  Report Type: Spontaneous
  Country: BR (occurrence: BR)
  Receive Date: 20131105
  Receipt Date: 20131105
  Transmission Date: 20140711
  Serious: Yes (Other)
  Sender: FDA-Public Use
  Company Number: BR-ROCHE-1295694

PATIENT
  Sex: Female
  Weight: 8 kg

DRUGS (5)
  1. CYMEVENE [Suspect]
     Indication: BACTERIAL INFECTION
     Route: 065
  2. CYMEVENE [Suspect]
     Route: 042
  3. LASIX [Concomitant]
     Dosage: HALF TABLET IN 2 ML
     Route: 065
  4. MYCOPHENOLATE MOFETIL [Concomitant]
     Route: 065
  5. APRESOLINA [Concomitant]
     Route: 065

REACTIONS (2)
  - Bacterial infection [Not Recovered/Not Resolved]
  - Poor venous access [Not Recovered/Not Resolved]
